FAERS Safety Report 7769116-6 (Version None)
Quarter: 2011Q3

REPORT INFORMATION
  Report Type: 
  Country: None (occurrence: None)
  Receive Date: 20110922
  Receipt Date: 20101119
  Transmission Date: 20111222
  Serious: Yes (Other)
  Sender: FDA-Public Use
  Company Number: US-ASTRAZENECA-2010SE55646

PATIENT
  Age: 68 Year
  Sex: Female

DRUGS (2)
  1. BENZO [Suspect]
  2. SEROQUEL XR [Suspect]
     Indication: CATATONIA
     Route: 048

REACTIONS (4)
  - CONVULSION [None]
  - WEIGHT DECREASED [None]
  - ASTHENIA [None]
  - TREMOR [None]
